FAERS Safety Report 7211699-9 (Version None)
Quarter: 2011Q1

REPORT INFORMATION
  Report Type: 
  Country: None (occurrence: None)
  Receive Date: 20110105
  Receipt Date: 20101231
  Transmission Date: 20110831
  Serious: Yes (Death)
  Sender: FDA-Public Use
  Company Number: US-PFIZER INC-2011000338

PATIENT
  Age: 20 Year
  Sex: Female

DRUGS (2)
  1. ALPRAZOLAM [Suspect]
     Dosage: UNK
     Route: 055
  2. CARBON MONOXIDE [Suspect]
     Route: 055

REACTIONS (4)
  - ACCIDENTAL EXPOSURE [None]
  - LUNG INFILTRATION [None]
  - VENTRICULAR EXTRASYSTOLES [None]
  - PNEUMONIA [None]
